FAERS Safety Report 6818519-2 (Version None)
Quarter: 2010Q3

REPORT INFORMATION
  Report Type: 
  Country: None (occurrence: None)
  Receive Date: 20100706
  Receipt Date: 20080422
  Transmission Date: 20110219
  Serious: No
  Sender: FDA-Public Use
  Company Number: US-PFIZER INC-2008036183

PATIENT
  Sex: Male
  Weight: 104.33 kg

DRUGS (1)
  1. AZITHROMYCIN [Suspect]
     Indication: INFECTION
     Dates: start: 20080401, end: 20080404

REACTIONS (1)
  - DIARRHOEA [None]
